FAERS Safety Report 4488071-8 (Version None)
Quarter: 2004Q4

REPORT INFORMATION
  Report Type: 
  Country: None (occurrence: None)
  Receive Date: 20041028
  Receipt Date: 20040922
  Transmission Date: 20050328
  Serious: Yes (Disabling)
  Sender: FDA-Public Use
  Company Number: JP-GLAXOSMITHKLINE-B0346369A

PATIENT
  Age: 81 Year
  Sex: Female
  Weight: 40 kg

DRUGS (7)
  1. ZOVIRAX [Suspect]
     Indication: HERPES ZOSTER
     Dosage: 800MG THREE TIMES PER DAY
     Route: 048
     Dates: start: 20040908, end: 20040911
  2. VALTREX [Suspect]
     Indication: HERPES ZOSTER
     Dosage: 1000MG THREE TIMES PER DAY
     Route: 048
     Dates: start: 20040910, end: 20040912
  3. LOXONIN [Suspect]
     Indication: ARTHRALGIA
     Dosage: 60MG THREE TIMES PER DAY
     Route: 048
     Dates: start: 20040901, end: 20040902
  4. NORVASC [Concomitant]
     Indication: HYPERTENSION
     Dosage: 5MG PER DAY
     Route: 048
  5. BAYASPIRIN [Concomitant]
     Indication: CEREBRAL INFARCTION
     Dosage: 100MG PER DAY
     Route: 048
  6. SOLON [Concomitant]
     Indication: ARTHRALGIA
     Dosage: 100MG THREE TIMES PER DAY
     Route: 048
     Dates: start: 20040901, end: 20040902
  7. DORNER [Concomitant]
     Indication: ARTHRALGIA
     Dosage: 20MCG THREE TIMES PER DAY
     Route: 048
     Dates: start: 20040901, end: 20040902

REACTIONS (4)
  - BLOOD CREATININE INCREASED [None]
  - BLOOD UREA INCREASED [None]
  - OVERDOSE [None]
  - RENAL FAILURE ACUTE [None]
